FAERS Safety Report 9659822 (Version 4)
Quarter: 2013Q4

REPORT INFORMATION
  Report Type: Spontaneous
  Country: US (occurrence: US)
  Receive Date: 20131031
  Receipt Date: 20131202
  Transmission Date: 20140711
  Serious: Yes (Death, Other)
  Sender: FDA-Public Use
  Company Number: US-PFIZER INC-2013308507

PATIENT
  Age: 29 Year
  Sex: Female

DRUGS (5)
  1. QUETIAPINE FUMARATE [Suspect]
     Dosage: UNK
  2. ESCITALOPRAM OXALATE [Suspect]
     Dosage: UNK
  3. IBUPROFEN [Suspect]
     Dosage: UNK
  4. DESVENLAFAXINE SUCCINATE MONOHYDRATE [Suspect]
     Dosage: UNK
  5. BUPROPION [Suspect]
     Dosage: UNK

REACTIONS (11)
  - Brain injury [Fatal]
  - Overdose [Unknown]
  - Cardiac arrest [Recovered/Resolved]
  - Coma scale abnormal [Unknown]
  - Pupil fixed [Unknown]
  - Circulatory collapse [Unknown]
  - Tachycardia [Recovered/Resolved]
  - Hypotension [Recovered/Resolved]
  - Gastrointestinal sounds abnormal [Unknown]
  - Areflexia [Unknown]
  - Dry skin [Unknown]
